FAERS Safety Report 9400113 (Version 1)
Quarter: 2013Q3

REPORT INFORMATION
  Report Type: Spontaneous
  Country: FR (occurrence: FR)
  Receive Date: 20130715
  Receipt Date: 20130715
  Transmission Date: 20140515
  Serious: Yes (Life-Threatening, Disabling)
  Sender: FDA-Public Use
  Company Number: FR-NOVOPROD-382636

PATIENT
  Age: 28 Year
  Sex: Female

DRUGS (5)
  1. NOVOSEVEN [Suspect]
     Indication: POSTPARTUM HAEMORRHAGE
     Dosage: 1 MG+ 5 MG
     Route: 042
     Dates: start: 20130329, end: 20130329
  2. NOVOSEVEN [Suspect]
     Dosage: UNK
     Dates: start: 20130329, end: 20130329
  3. NALADOR [Suspect]
     Dosage: 2 VIALS, UNK
     Route: 042
     Dates: start: 20130329, end: 20130329
  4. EXACYL [Suspect]
     Dosage: 5 G, UNK
     Route: 042
     Dates: start: 20130330
  5. SYNTOCINON [Suspect]
     Dosage: 5 IU, UNK
     Route: 042
     Dates: start: 20130329, end: 20130329

REACTIONS (1)
  - Renal cortical necrosis [Unknown]
